FAERS Safety Report 6150123-4 (Version None)
Quarter: 2009Q2

REPORT INFORMATION
  Report Type: 
  Country: None (occurrence: None)
  Receive Date: 20090407
  Receipt Date: 20090401
  Transmission Date: 20091009
  Serious: Yes (Hospitalization)
  Sender: FDA-Public Use
  Company Number: 2007SP016559

PATIENT
  Age: 65 Year
  Sex: Female

DRUGS (2)
  1. PEG-INTRON [Suspect]
     Indication: HEPATITIS C
     Dosage: SC
     Route: 058
     Dates: start: 20061001, end: 20070701
  2. REBETOL [Suspect]
     Indication: HEPATITIS C
     Dosage: PO

REACTIONS (7)
  - ABDOMINAL PAIN UPPER [None]
  - ANOREXIA [None]
  - BLOOD ALBUMIN DECREASED [None]
  - DEPRESSION [None]
  - GASTROINTESTINAL MUCOSAL DISORDER [None]
  - MALAISE [None]
  - VOMITING [None]
